FAERS Safety Report 16850045 (Version 1)
Quarter: 2019Q3

REPORT INFORMATION
  Report Type: Spontaneous
  Country: US (occurrence: US)
  Receive Date: 20190804
  Receipt Date: 20190804
  Transmission Date: 20191005
  Serious: No
  Sender: FDA-Public Use
  Company Number: None

PATIENT
  Sex: Female

DRUGS (1)
  1. INLYTA [Suspect]
     Active Substance: AXITINIB
     Indication: THYROID CANCER
     Route: 048
     Dates: start: 201905

REACTIONS (3)
  - Dysphonia [None]
  - Weight decreased [None]
  - Decreased appetite [None]
